FAERS Safety Report 9584492 (Version 2)
Quarter: 2014Q1

REPORT INFORMATION
  Report Type: Spontaneous
  Country: US (occurrence: US)
  Receive Date: 20131002
  Receipt Date: 20140227
  Transmission Date: 20141002
  Serious: No
  Sender: FDA-Public Use
  Company Number: US-AMGEN-USASP2013053579

PATIENT
  Age: 58 Year
  Sex: Male
  Weight: 104 kg

DRUGS (4)
  1. ENBREL [Suspect]
     Indication: PRODUCT USED FOR UNKNOWN INDICATION
     Dosage: 50 MG, 2 TIMES/WK
     Route: 058
  2. ULTRAVATE                          /00008504/ [Concomitant]
     Dosage: 0.05 %, UNK EX
  3. HYDROXYZINE HYDROCHLORIDE [Concomitant]
     Dosage: 10 MG, UNK
     Route: 048
  4. MULTIVITAMINS, PLAIN [Concomitant]
     Dosage: UNK
     Route: 048

REACTIONS (2)
  - Injection site reaction [Unknown]
  - Injection site pain [Unknown]
